FAERS Safety Report 21157674 (Version 1)
Quarter: 2022Q3

REPORT INFORMATION
  Report Type: Spontaneous
  Country: CN (occurrence: CN)
  Receive Date: 20220801
  Receipt Date: 20220801
  Transmission Date: 20221026
  Serious: Yes (Hospitalization)
  Sender: FDA-Public Use
  Company Number: None

PATIENT
  Age: 49 Year
  Sex: Female
  Weight: 45.5 kg

DRUGS (10)
  1. CYCLOPHOSPHAMIDE [Suspect]
     Active Substance: CYCLOPHOSPHAMIDE
     Indication: Plasma cell myeloma
     Dosage: QD, 0.4 G CYCLOPHOSPHAMIDE INJECTION DILUTED WITH 500 ML 0.9% SODIUM CHLORIDE INJECTION
     Route: 041
     Dates: start: 20220703, end: 20220703
  2. CYCLOPHOSPHAMIDE [Suspect]
     Active Substance: CYCLOPHOSPHAMIDE
     Dosage: QD, 0.4 G CYCLOPHOSPHAMIDE INJECTION DILUTED WITH 500 ML 0.9% SODIUM CHLORIDE INJECTION
     Route: 041
     Dates: start: 20220710, end: 20220710
  3. CYCLOPHOSPHAMIDE [Suspect]
     Active Substance: CYCLOPHOSPHAMIDE
     Dosage: QD, 0.4 G CYCLOPHOSPHAMIDE INJECTION DILUTED WITH 500 ML 0.9% SODIUM CHLORIDE INJECTION
     Route: 041
     Dates: start: 20220717, end: 20220717
  4. SODIUM CHLORIDE [Suspect]
     Active Substance: SODIUM CHLORIDE
     Indication: Medication dilution
     Dosage: QD, 0.4 G CYCLOPHOSPHAMIDE INJECTION DILUTED WITH 500 ML 0.9% SODIUM CHLORIDE INJECTION
     Route: 041
     Dates: start: 20220703, end: 20220703
  5. SODIUM CHLORIDE [Suspect]
     Active Substance: SODIUM CHLORIDE
     Dosage: QD, 0.4 G CYCLOPHOSPHAMIDE INJECTION DILUTED WITH 500 ML 0.9% SODIUM CHLORIDE INJECTION
     Route: 041
     Dates: start: 20220710, end: 20220710
  6. SODIUM CHLORIDE [Suspect]
     Active Substance: SODIUM CHLORIDE
     Dosage: QD, 0.4 G CYCLOPHOSPHAMIDE INJECTION DILUTED WITH 500 ML 0.9% SODIUM CHLORIDE INJECTION
     Route: 041
     Dates: start: 20220717, end: 20220717
  7. BORTEZOMIB [Suspect]
     Active Substance: BORTEZOMIB
     Indication: Plasma cell myeloma
     Dosage: 1.900000 MG, QD,
     Route: 058
     Dates: start: 20220703, end: 20220703
  8. BORTEZOMIB [Suspect]
     Active Substance: BORTEZOMIB
     Dosage: 1.900000 MG QD
     Route: 058
     Dates: start: 20220706, end: 20220706
  9. BORTEZOMIB [Suspect]
     Active Substance: BORTEZOMIB
     Dosage: 1.900000 MG, QD
     Route: 058
     Dates: start: 20220710, end: 20220710
  10. BORTEZOMIB [Suspect]
     Active Substance: BORTEZOMIB
     Dosage: 1.900000 MG, QD
     Route: 058
     Dates: start: 20220713, end: 20220713

REACTIONS (2)
  - White blood cell count decreased [Recovering/Resolving]
  - Neutrophil count decreased [Recovering/Resolving]

NARRATIVE: CASE EVENT DATE: 20220717
